FAERS Safety Report 7568492-7 (Version None)
Quarter: 2011Q2

REPORT INFORMATION
  Report Type: 
  Country: None (occurrence: None)
  Receive Date: 20110623
  Receipt Date: 20110615
  Transmission Date: 20111010
  Serious: Yes (Hospitalization)
  Sender: FDA-Public Use
  Company Number: US-JNJFOC-20110608341

PATIENT
  Age: 61 Year
  Sex: Male

DRUGS (4)
  1. INVEGA SUSTENNA [Suspect]
     Route: 030
     Dates: start: 20110601
  2. INVEGA [Suspect]
     Indication: SCHIZOPHRENIA
     Route: 048
     Dates: start: 20110601
  3. INVEGA SUSTENNA [Suspect]
     Indication: SCHIZOPHRENIA
     Route: 030
     Dates: start: 20110201
  4. DEPAKOTE [Suspect]
     Indication: SCHIZOPHRENIA
     Route: 048
     Dates: start: 20110601

REACTIONS (1)
  - PSYCHOTIC DISORDER [None]
